FAERS Safety Report 10128446 (Version 1)
Quarter: 2014Q2

REPORT INFORMATION
  Report Type: Spontaneous
  Country: CA (occurrence: CA)
  Receive Date: 20140428
  Receipt Date: 20140428
  Transmission Date: 20141212
  Serious: Yes (Other)
  Sender: FDA-Public Use
  Company Number: CA-ROCHE-1388450

PATIENT
  Age: 61 Year
  Sex: Female

DRUGS (10)
  1. XELODA [Suspect]
     Indication: PRODUCT USED FOR UNKNOWN INDICATION
     Route: 065
  2. TYKERB [Suspect]
     Indication: PRODUCT USED FOR UNKNOWN INDICATION
     Dosage: THERAPY DURATION:  198.0 DAY(S)
     Route: 048
  3. DOCUSATE [Concomitant]
  4. HYDROMORPHONE HYDROCHLORIDE [Concomitant]
     Route: 030
  5. METFORMIN [Concomitant]
     Route: 065
  6. PANTOPRAZOLE [Concomitant]
  7. PYRIDOXINE [Concomitant]
  8. SENOKOT [Concomitant]
  9. TRAZODONE [Concomitant]
     Route: 065
  10. VENLAFAXINE [Concomitant]
     Route: 065

REACTIONS (5)
  - Constipation [Unknown]
  - Drug ineffective [Unknown]
  - Malignant neoplasm progression [Unknown]
  - Nausea [Unknown]
  - Vomiting [Unknown]
